FAERS Safety Report 9600879 (Version 1)
Quarter: 2013Q4

REPORT INFORMATION
  Report Type: Spontaneous
  Country: US (occurrence: US)
  Receive Date: 20131004
  Receipt Date: 20131004
  Transmission Date: 20140711
  Serious: No
  Sender: FDA-Public Use
  Company Number: US-AMGEN-USASP2013037476

PATIENT
  Age: 58 Year
  Sex: Female

DRUGS (9)
  1. ENBREL [Suspect]
     Indication: PRODUCT USED FOR UNKNOWN INDICATION
     Dosage: 50 MG, QWK
     Route: 058
  2. METHOTREXATE [Concomitant]
     Dosage: 1 G, UNK
  3. VIVELLE-DOT [Concomitant]
     Dosage: 0.05 MG, UNK
  4. AVAPRO [Concomitant]
     Dosage: 300 MG, UNK
  5. LEVOTHYROXIN [Concomitant]
     Dosage: 100 MUG, UNK
  6. CALTRATE                           /07357001/ [Concomitant]
     Dosage: 600 UNK, UNK
  7. MELOXICAM [Concomitant]
     Dosage: 15 MG, UNK
  8. SAVELLA [Concomitant]
     Dosage: 12.5 MG, UNK
  9. ONE DAILY                          /01824901/ [Concomitant]
     Dosage: UNK

REACTIONS (1)
  - Upper respiratory tract infection [Unknown]
